FAERS Safety Report 12919674 (Version 1)
Quarter: 2016Q4

REPORT INFORMATION
  Report Type: Spontaneous
  Country: US (occurrence: US)
  Receive Date: 20161103
  Receipt Date: 20161103
  Transmission Date: 20170207
  Serious: No
  Sender: FDA-Public Use
  Company Number: None

PATIENT
  Age: 65 Year
  Sex: Female

DRUGS (1)
  1. GILENYA [Suspect]
     Active Substance: FINGOLIMOD HYDROCHLORIDE
     Indication: MULTIPLE SCLEROSIS
     Route: 048
     Dates: start: 2015, end: 201609

REACTIONS (5)
  - Fall [None]
  - Memory impairment [None]
  - Balance disorder [None]
  - Gait disturbance [None]
  - Therapy cessation [None]

NARRATIVE: CASE EVENT DATE: 20160915
